FAERS Safety Report 4919896-X (Version None)
Quarter: 2006Q1

REPORT INFORMATION
  Report Type: 
  Country: None (occurrence: None)
  Receive Date: 20060223
  Receipt Date: 20051222
  Transmission Date: 20060701
  Serious: Yes (Other)
  Sender: FDA-Public Use
  Company Number: DE-BRISTOL-MYERS SQUIBB COMPANY-13228606

PATIENT
  Age: 54 Year
  Sex: Female

DRUGS (3)
  1. AVAPRO [Suspect]
     Indication: HYPERTENSION
     Dosage: 300 MG FROM 1998 TO 20-DEC-2005, 150 MG FROM DEC-2005 - N/I, 300 MG FROM DEC-2005 - ONGOING.
     Route: 048
     Dates: start: 19980101
  2. KARVEZIDE TABS [Suspect]
     Indication: HYPERTENSION
     Route: 048
     Dates: start: 20010320
  3. BAYOTENSIN [Suspect]
     Indication: HYPERTENSION
     Route: 048

REACTIONS (1)
  - ANAEMIA [None]
